FAERS Safety Report 22651841 (Version 1)
Quarter: 2023Q2

REPORT INFORMATION
  Report Type: Spontaneous
  Country: US (occurrence: US)
  Receive Date: 20230628
  Receipt Date: 20230628
  Transmission Date: 20230722
  Serious: No
  Sender: FDA-Public Use
  Company Number: US-CTI BIOPHARMA-2023US03656

PATIENT

DRUGS (10)
  1. VONJO [Suspect]
     Active Substance: PACRITINIB
     Indication: Myelofibrosis
     Dosage: 100 MG, BID
     Route: 048
     Dates: start: 20230213
  2. BETIMOL [TIMOLOL MALEATE] [Concomitant]
  3. FAMOTIDINE [Concomitant]
     Active Substance: FAMOTIDINE
  4. FOLIC ACID [Concomitant]
     Active Substance: FOLIC ACID
  5. FUROSEMIDE [Concomitant]
     Active Substance: FUROSEMIDE
  6. LEVOTHYROXINE [Concomitant]
     Active Substance: LEVOTHYROXINE
  7. LUMIGAN [Concomitant]
     Active Substance: BIMATOPROST
  8. VITAMINS NOS [Concomitant]
     Active Substance: VITAMINS
  9. SPIRONOLACTONE [Concomitant]
     Active Substance: SPIRONOLACTONE
  10. VITAMIN B12 [Concomitant]
     Active Substance: CYANOCOBALAMIN

REACTIONS (3)
  - Full blood count decreased [Not Recovered/Not Resolved]
  - Mood swings [Not Recovered/Not Resolved]
  - Anger [Unknown]
